FAERS Safety Report 14940047 (Version 2)
Quarter: 2018Q3

REPORT INFORMATION
  Report Type: Spontaneous
  Country: US (occurrence: US)
  Receive Date: 20180525
  Receipt Date: 20180709
  Transmission Date: 20181010
  Serious: No
  Sender: FDA-Public Use
  Company Number: US-TEVA-2018-US-894810

PATIENT
  Age: 33 Year
  Sex: Female

DRUGS (4)
  1. MAGNESIUM [Concomitant]
     Active Substance: MAGNESIUM
  2. VITAMIN C [Concomitant]
     Active Substance: ASCORBIC ACID
  3. COPAXONE [Suspect]
     Active Substance: GLATIRAMER ACETATE
     Indication: MULTIPLE SCLEROSIS
     Route: 065
  4. TRAZODONE [Concomitant]
     Active Substance: TRAZODONE HYDROCHLORIDE
     Dosage: NIGHTLY

REACTIONS (9)
  - Nausea [Recovered/Resolved]
  - Respiratory disorder [Recovered/Resolved]
  - Flushing [Unknown]
  - Feeling abnormal [Recovered/Resolved]
  - Anxiety [Unknown]
  - Sensation of foreign body [Recovered/Resolved]
  - Migraine [Unknown]
  - Immediate post-injection reaction [Unknown]
  - Vomiting [Recovered/Resolved]

NARRATIVE: CASE EVENT DATE: 20180514
